FAERS Safety Report 7819445-2 (Version None)
Quarter: 2011Q4

REPORT INFORMATION
  Report Type: 
  Country: None (occurrence: None)
  Receive Date: 20111018
  Receipt Date: 20101105
  Transmission Date: 20120403
  Serious: No
  Sender: FDA-Public Use
  Company Number: US-ASTRAZENECA-2010SE45216

PATIENT
  Age: 84 Year
  Sex: Female

DRUGS (7)
  1. SYMBICORT [Suspect]
     Indication: CHRONIC OBSTRUCTIVE PULMONARY DISEASE
     Dosage: TOTAL DAILY DOSAGE: 160-4.5 MCG, 2 PUFFS
     Route: 055
     Dates: start: 20100901
  2. BENICAR [Concomitant]
  3. ALLOPURINOL [Concomitant]
  4. SYMBICORT [Suspect]
     Indication: ASTHMA
     Dosage: TOTAL DAILY DOSAGE: 160-4.5 MCG, 2 PUFFS
     Route: 055
     Dates: start: 20100901
  5. DIGOXIN [Concomitant]
  6. LIPITOR [Concomitant]
  7. CARVEDILOL [Concomitant]

REACTIONS (3)
  - DYSPHONIA [None]
  - DRUG DOSE OMISSION [None]
  - HYPERTENSION [None]
